FAERS Safety Report 8185172-8 (Version None)
Quarter: 2012Q1

REPORT INFORMATION
  Report Type: 
  Country: None (occurrence: None)
  Receive Date: 20120305
  Receipt Date: 20120227
  Transmission Date: 20120608
  Serious: Yes (Hospitalization)
  Sender: FDA-Public Use
  Company Number: US-ACTELION-A-US2007-14740

PATIENT

DRUGS (1)
  1. TRACLEER [Suspect]
     Indication: PULMONARY ARTERIAL HYPERTENSION
     Route: 048
     Dates: start: 20030210

REACTIONS (12)
  - HYPERTHYROIDISM [None]
  - TRANSFUSION [None]
  - COUGH [None]
  - ANAEMIA [None]
  - HAEMATOCHEZIA [None]
  - LETHARGY [None]
  - HAEMORRHAGE [None]
  - WHEEZING [None]
  - NAUSEA [None]
  - DYSPNOEA [None]
  - DECREASED APPETITE [None]
  - FATIGUE [None]
